FAERS Safety Report 5887719-0 (Version None)
Quarter: 2008Q3

REPORT INFORMATION
  Report Type: 
  Country: None (occurrence: None)
  Receive Date: 20080916
  Receipt Date: 20080916
  Transmission Date: 20090109
  Serious: Yes (Death)
  Sender: FDA-Public Use
  Company Number: None

PATIENT
  Sex: Male
  Weight: 140.6151 kg

DRUGS (2)
  1. PPX  PACLITAXEL POLIGLUMEX [Suspect]
     Indication: OESOPHAGEAL CARCINOMA
     Dosage: 50MG/M2  WKLY X 6 WEEKS IV
     Route: 042
     Dates: start: 20080327, end: 20080430
  2. CISPLATIN [Suspect]
     Indication: OESOPHAGEAL CARCINOMA
     Dosage: 25MG?M2  WKLY X 6  IV
     Route: 042
     Dates: start: 20080327, end: 20080430

REACTIONS (8)
  - ABDOMINAL COMPARTMENT SYNDROME [None]
  - CLOSTRIDIUM DIFFICILE COLITIS [None]
  - GENERAL PHYSICAL HEALTH DETERIORATION [None]
  - MULTI-ORGAN FAILURE [None]
  - POST PROCEDURAL COMPLICATION [None]
  - RESPIRATORY FAILURE [None]
  - SEPTIC SHOCK [None]
  - SYSTEMIC INFLAMMATORY RESPONSE SYNDROME [None]
